FAERS Safety Report 5737581-1 (Version None)
Quarter: 2008Q2

REPORT INFORMATION
  Report Type: 
  Country: None (occurrence: None)
  Receive Date: 20080514
  Receipt Date: 20071025
  Transmission Date: 20081010
  Serious: No
  Sender: FDA-Public Use
  Company Number: US-ABBOTT-07P-163-0422559-00

PATIENT
  Sex: Male
  Weight: 79.5 kg

DRUGS (3)
  1. ZEMPLAR [Suspect]
     Indication: BLOOD CALCIUM ABNORMAL
  2. ZEMPLAR [Suspect]
     Indication: BLOOD PHOSPHORUS ABNORMAL
  3. UNREPORTED: TO MANY TO LIST [Concomitant]
     Indication: DRUG USE FOR UNKNOWN INDICATION

REACTIONS (1)
  - COUGH [None]
